FAERS Safety Report 24972312 (Version 3)
Quarter: 2025Q1

REPORT INFORMATION
  Report Type: Report from Study
  Country: US (occurrence: US)
  Receive Date: 20250214
  Receipt Date: 20250224
  Transmission Date: 20250409
  Serious: Yes (Other)
  Sender: ABBVIE
  Company Number: US-ABBVIE-6129362

PATIENT
  Age: 29 Year
  Sex: Male
  Weight: 83.914 kg

DRUGS (5)
  1. RINVOQ [Suspect]
     Active Substance: UPADACITINIB
     Indication: Rheumatoid arthritis
     Dosage: FORM STRENGTH 15 MG
     Route: 048
     Dates: start: 20190828, end: 202407
  2. RINVOQ [Suspect]
     Active Substance: UPADACITINIB
     Indication: Rheumatoid arthritis
     Dosage: FORM STRENGTH 15 MG
     Route: 048
     Dates: start: 202407
  3. METHOTREXATE [Concomitant]
     Active Substance: METHOTREXATE
     Indication: Rheumatoid arthritis
  4. AMLODIPINE [Concomitant]
     Active Substance: AMLODIPINE BESYLATE
     Indication: Blood pressure management
  5. HYDROCHLOROTHIAZIDE [Concomitant]
     Active Substance: HYDROCHLOROTHIAZIDE
     Indication: Blood pressure management

REACTIONS (3)
  - Sinusitis [Recovered/Resolved]
  - Rheumatoid arthritis [Not Recovered/Not Resolved]
  - Illness [Unknown]

NARRATIVE: CASE EVENT DATE: 20240101
